FAERS Safety Report 8768082 (Version 2)
Quarter: 2012Q4

REPORT INFORMATION
  Report Type: Report from Study
  Country: JP (occurrence: JP)
  Receive Date: 20120905
  Receipt Date: 20120905
  Transmission Date: 20130627
  Serious: No
  Sender: FDA-Public Use
  Company Number: PHHY2009JP41838

PATIENT
  Age: 60 Year
  Sex: Male

DRUGS (6)
  1. AMN107 [Suspect]
     Indication: CHRONIC MYELOID LEUKAEMIA
     Dosage: 800 mg, daily
     Route: 048
     Dates: start: 20090407
  2. GLIVEC [Concomitant]
     Indication: CHRONIC MYELOID LEUKAEMIA
     Dosage: 400 mg, UNK
     Route: 048
     Dates: start: 20040422, end: 20090406
  3. MUCOSTA [Concomitant]
     Indication: PROPHYLAXIS
     Dosage: 300 mg, UNK
     Route: 048
     Dates: start: 20060324
  4. TAKEPRON [Concomitant]
     Indication: PROPHYLAXIS
     Dosage: 15 mg, UNK
     Route: 048
     Dates: start: 20070109
  5. LASIX [Concomitant]
     Indication: PROPHYLAXIS
     Dosage: 40 mg, UNK
     Route: 048
     Dates: start: 20060620
  6. LASIX [Concomitant]
     Dosage: 20 mg, UNK
     Route: 048
     Dates: end: 20090720

REACTIONS (7)
  - Gamma-glutamyltransferase increased [Recovered/Resolved]
  - Eosinophil count decreased [Unknown]
  - Somnolence [Recovered/Resolved]
  - Headache [Recovered/Resolved]
  - Malaise [Recovered/Resolved]
  - Decreased appetite [Recovered/Resolved]
  - Blood urea increased [Unknown]
